FAERS Safety Report 9114671 (Version 1)
Quarter: 2013Q3

REPORT INFORMATION
  Report Type: Spontaneous
  Country: US (occurrence: None)
  Receive Date: 20120907
  Receipt Date: 20120907
  Transmission Date: 20140515
  Serious: Yes (Hospitalization)
  Sender: FDA-Public Use
  Company Number: None

PATIENT
  Age: 60 Year
  Sex: Female
  Weight: 56.7 kg

DRUGS (6)
  1. LENALIDOMIDE [Suspect]
     Indication: HODGKIN^S DISEASE
     Dosage: D1-21 OF 28
     Dates: start: 20120531, end: 20120718
  2. PANOBINOSTAT [Suspect]
     Indication: HODGKIN^S DISEASE
     Dosage: D1, 3, 5 EACH WEEK
     Dates: start: 20120531, end: 20120722
  3. ASPIRIN [Concomitant]
  4. PREDNISONE [Concomitant]
  5. VALTREX [Concomitant]
  6. KAYCIEL [Concomitant]

REACTIONS (5)
  - Dyspnoea [None]
  - Pyrexia [None]
  - Bone marrow failure [None]
  - Pneumonia [None]
  - Sepsis [None]
